FAERS Safety Report 8270225-6 (Version None)
Quarter: 2012Q2

REPORT INFORMATION
  Report Type: 
  Country: None (occurrence: None)
  Receive Date: 20120410
  Receipt Date: 20120315
  Transmission Date: 20120825
  Serious: No
  Sender: FDA-Public Use
  Company Number: US-BAYER-2012-025909

PATIENT
  Sex: Female

DRUGS (2)
  1. CLIMARA PRO [Suspect]
     Dosage: 0.045MG/0.015MG/DAY
     Route: 062
     Dates: start: 20110301, end: 20120101
  2. CLIMARA PRO [Suspect]
     Indication: HOT FLUSH
     Dosage: 0.045MG/0.015MG/DAY
     Route: 062
     Dates: start: 20110301, end: 20120101

REACTIONS (1)
  - APPLICATION SITE RASH [None]
